FAERS Safety Report 12745480 (Version 2)
Quarter: 2016Q3

REPORT INFORMATION
  Report Type: Spontaneous
  Country: US (occurrence: US)
  Receive Date: 20160915
  Receipt Date: 20160926
  Transmission Date: 20161109
  Serious: No
  Sender: FDA-Public Use
  Company Number: US-PFIZER INC-2016429046

PATIENT
  Age: 59 Year
  Sex: Female
  Weight: 52.15 kg

DRUGS (2)
  1. ESTROGEL [Concomitant]
     Active Substance: ESTRADIOL
     Indication: OOPHORECTOMY
     Dosage: UNK, 1X/DAY  (0.06% PREMEASURED PUMP ONE PUMP TOPICALLY)
     Route: 061
     Dates: start: 2003
  2. CHANTIX [Suspect]
     Active Substance: VARENICLINE TARTRATE
     Indication: SMOKING CESSATION THERAPY
     Dosage: UNK
     Dates: start: 201310, end: 201311

REACTIONS (3)
  - Poor quality sleep [Unknown]
  - Abnormal dreams [Not Recovered/Not Resolved]
  - Fatigue [Unknown]

NARRATIVE: CASE EVENT DATE: 201310
